FAERS Safety Report 4881150-2 (Version None)
Quarter: 2005Q4

REPORT INFORMATION
  Report Type: 
  Country: None (occurrence: None)
  Receive Date: 20051223
  Receipt Date: 20050906
  Transmission Date: 20060501
  Serious: No
  Sender: FDA-Public Use
  Company Number: 05P-163-0310368-00

PATIENT
  Age: 61 Year
  Sex: Female
  Weight: 59.8748 kg

DRUGS (4)
  1. HUMIRA [Suspect]
     Indication: RHEUMATOID ARTHRITIS
     Dosage: 40 MG, 1 IN 1 WK, SUBCUTANEOUS
     Route: 058
     Dates: start: 20030101
  2. BENAZEPRIL HYDROCHLORIDE [Concomitant]
  3. DILTIAZEM HYDROCHLORIDE [Concomitant]
  4. URSODEOXYCHOLIC ACID [Concomitant]

REACTIONS (1)
  - HAEMORRHOIDS [None]
